FAERS Safety Report 26034227 (Version 2)
Quarter: 2025Q4

REPORT INFORMATION
  Report Type: Spontaneous
  Country: EU (occurrence: EU)
  Receive Date: 20251112
  Receipt Date: 20251125
  Transmission Date: 20260118
  Serious: Yes (Hospitalization)
  Sender: AUROBINDO
  Company Number: EU-AUROBINDO-AUR-APL-2025-056543

PATIENT
  Age: 67 Year
  Sex: Male

DRUGS (4)
  1. AZITHROMYCIN DIHYDRATE [Suspect]
     Active Substance: AZITHROMYCIN DIHYDRATE
     Indication: Pyrexia
     Dosage: AZITROMICINA. DOSAGGIO, POSOLOGIA, FORMA FARMACEUTICA E SPECIALIT? MEDICINALE NON NOTI
     Dates: start: 20251019, end: 20251020
  2. AZITHROMYCIN DIHYDRATE [Suspect]
     Active Substance: AZITHROMYCIN DIHYDRATE
     Indication: Diarrhoea
  3. ELIQUIS [Concomitant]
     Active Substance: APIXABAN
     Indication: Cardiovascular event prophylaxis
     Dosage: ELIQUIS 5 MG, 1 TABLET 2/DAY
  4. BISOPROLOL FUMARATE [Concomitant]
     Active Substance: BISOPROLOL FUMARATE
     Indication: Atrial fibrillation
     Dosage: CARDICOR 2.5 MG, 1 CP DIE

REACTIONS (3)
  - Chest pain [Recovered/Resolved]
  - Tachycardia [Recovered/Resolved]
  - Off label use [Recovered/Resolved]

NARRATIVE: CASE EVENT DATE: 20251019
